FAERS Safety Report 25259934 (Version 1)
Quarter: 2025Q2

REPORT INFORMATION
  Report Type: Spontaneous
  Country: US (occurrence: None)
  Receive Date: 20250430
  Receipt Date: 20250430
  Transmission Date: 20250716
  Serious: Yes (Disabling)
  Sender: FDA-CTU
  Company Number: None

PATIENT
  Age: 41 Year
  Sex: Female
  Weight: 99 kg

DRUGS (5)
  1. WEGOVY [Suspect]
     Active Substance: SEMAGLUTIDE
     Indication: Weight decreased
     Route: 058
     Dates: start: 20231115, end: 20240510
  2. VITAMIN A [Concomitant]
     Active Substance: VITAMIN A
  3. DIETARY SUPPLEMENT\HERBALS\MILK THISTLE [Concomitant]
     Active Substance: MILK THISTLE
  4. ZINC [Concomitant]
     Active Substance: ZINC
  5. LLYSIN [Concomitant]

REACTIONS (9)
  - Thyroiditis [None]
  - Oropharyngeal pain [None]
  - Pharyngeal swelling [None]
  - Thyroid mass [None]
  - Alopecia [None]
  - Swollen tongue [None]
  - Nausea [None]
  - Mood swings [None]
  - Fatigue [None]

NARRATIVE: CASE EVENT DATE: 20240510
